FAERS Safety Report 16731867 (Version 1)
Quarter: 2019Q3

REPORT INFORMATION
  Report Type: Spontaneous
  Country: US (occurrence: US)
  Receive Date: 20190822
  Receipt Date: 20190822
  Transmission Date: 20191005
  Serious: No
  Sender: FDA-Public Use
  Company Number: US-TEVA-2019-US-1095112

PATIENT
  Age: 79 Year
  Sex: Male

DRUGS (1)
  1. NIACIN. [Suspect]
     Active Substance: NIACIN
     Route: 065

REACTIONS (2)
  - Drug hypersensitivity [Unknown]
  - Adverse drug reaction [Unknown]
